FAERS Safety Report 8252163-8 (Version None)
Quarter: 2012Q2

REPORT INFORMATION
  Report Type: 
  Country: None (occurrence: None)
  Receive Date: 20120402
  Receipt Date: 20110413
  Transmission Date: 20120825
  Serious: No
  Sender: FDA-Public Use
  Company Number: US-ABBOTT-11P-163-0804435-00

PATIENT
  Sex: Male
  Weight: 79.545 kg

DRUGS (10)
  1. BUPROPION HYDROCHLORIDE [Concomitant]
     Indication: DEPRESSION
     Dosage: DAILY DOSE:  UNKNOWN
     Route: 065
  2. RAMIPRIL [Concomitant]
     Indication: CARDIAC DISORDER
     Dosage: DAILY DOSE:  UNKNOWN
     Route: 065
  3. METRONIDAZOLE [Concomitant]
     Indication: ROSACEA
     Dosage: DAILY DOSE:  UNKNOWN
     Route: 065
  4. TESTOSTERONE [Suspect]
     Indication: BLOOD TESTOSTERONE DECREASED
     Dosage: DAILY DOSE: 7.5 GRAM(S)
     Route: 062
     Dates: start: 20090101, end: 20110101
  5. METFORMIN [Concomitant]
     Indication: TYPE 2 DIABETES MELLITUS
     Dosage: DAILY DOSE:  UNKNOWN
     Route: 065
  6. NAPROXEN SODIUM [Concomitant]
     Indication: ARTHRITIS
     Dosage: DAILY DOSE:  UNKNOWN
     Route: 065
  7. SIMVASTATIN [Concomitant]
     Indication: BLOOD CHOLESTEROL INCREASED
     Dosage: DAILY DOSE:  UNKNOWN
     Route: 065
  8. TESTOSTERONE [Suspect]
     Dosage: DAILY DOSE: 7.5 GRAM(S)
     Route: 062
     Dates: start: 20110101
  9. ATENOLOL [Concomitant]
     Indication: HEART RATE ABNORMAL
     Dosage: DAILY DOSE:  UNKNOWN
     Route: 065
  10. TAMSULOSIN [Concomitant]
     Indication: PROSTATIC DISORDER
     Dosage: DAILY DOSE:  UNKNOWN
     Route: 065

REACTIONS (2)
  - APPLICATION SITE REACTION [None]
  - INAPPROPRIATE SCHEDULE OF DRUG ADMINISTRATION [None]
